FAERS Safety Report 4587483-1 (Version None)
Quarter: 2005Q1

REPORT INFORMATION
  Report Type: 
  Country: None (occurrence: None)
  Receive Date: 20050215
  Receipt Date: 20050208
  Transmission Date: 20050727
  Serious: No
  Sender: FDA-Public Use
  Company Number: 2005UW02233

PATIENT
  Age: 46 Year
  Sex: Male
  Weight: 86.182 kg

DRUGS (2)
  1. SEROQUEL [Suspect]
  2. PARNATE [Suspect]

REACTIONS (4)
  - DEPRESSION [None]
  - DRUG INTERACTION [None]
  - HUNGER [None]
  - SUICIDE ATTEMPT [None]
